FAERS Safety Report 23507780 (Version 2)
Quarter: 2024Q1

REPORT INFORMATION
  Report Type: Spontaneous
  Country: US (occurrence: US)
  Receive Date: 20240209
  Receipt Date: 20240305
  Transmission Date: 20240410
  Serious: No
  Sender: FDA-Public Use
  Company Number: US-PFIZER INC-202400034925

PATIENT
  Age: 39 Year
  Sex: Female
  Weight: 56.689 kg

DRUGS (12)
  1. PAXLOVID [Suspect]
     Active Substance: NIRMATRELVIR\RITONAVIR
     Indication: COVID-19 treatment
     Dosage: 300 MG/100 MG, 2X/DAY
     Route: 048
     Dates: start: 20240124, end: 20240129
  2. NIKKI [Concomitant]
     Active Substance: DROSPIRENONE\ETHINYL ESTRADIOL
     Indication: Contraception
     Dosage: UNK
     Route: 048
     Dates: start: 2007
  3. NIKKI [Concomitant]
     Active Substance: DROSPIRENONE\ETHINYL ESTRADIOL
     Indication: Acne
  4. LACTOFERRIN [Concomitant]
     Active Substance: LACTOFERRIN
     Indication: Nutritional supplementation
     Dosage: UNK
     Route: 048
     Dates: start: 202312
  5. SOLARAY NATTOKINASE [Concomitant]
  6. ULTIMATE OMEGA + COQ10 [Concomitant]
  7. MELATONIN/THEANINE [Concomitant]
  8. NATURE MADE VITAMIN C [Concomitant]
  9. TEAVIGO [Concomitant]
     Indication: Nutritional supplementation
     Dosage: EPIGALLOCATECHIN GALLATE (ECGC)
     Route: 048
     Dates: start: 202307
  10. OLLY SLEEP [Concomitant]
     Indication: Sleep disorder
     Dosage: MELATONIN/L-THEANINE 3 MG/100 MG, DID NOT TAKE AT SAME TIME AS NYQUIL
     Route: 048
     Dates: start: 20240124, end: 20240213
  11. VICKS NYQUIL [Concomitant]
     Active Substance: ACETAMINOPHEN\DEXTROMETHORPHAN HYDROBROMIDE\DOXYLAMINE SUCCINATE
     Indication: Nasopharyngitis
     Dosage: 1 TIME, SLEPT FOR 11 HOURS (HRS)
     Route: 048
     Dates: start: 20240125
  12. MUCINEX DM [Concomitant]
     Active Substance: DEXTROMETHORPHAN HYDROBROMIDE\GUAIFENESIN
     Indication: Cough
     Dosage: DID NOT TAKE AT SAME TIME AS NYQUIL
     Route: 048
     Dates: start: 20240123, end: 20240209

REACTIONS (3)
  - Therapeutic product effect incomplete [Unknown]
  - COVID-19 [Recovered/Resolved]
  - Disease recurrence [Recovered/Resolved]

NARRATIVE: CASE EVENT DATE: 20240130
